FAERS Safety Report 4479699-X (Version None)
Quarter: 2004Q4

REPORT INFORMATION
  Report Type: 
  Country: None (occurrence: None)
  Receive Date: 20041020
  Receipt Date: 20041013
  Transmission Date: 20050328
  Serious: Yes (Hospitalization, Disabling)
  Sender: FDA-Public Use
  Company Number: US-JNJFOC-20040305341

PATIENT
  Sex: Female
  Weight: 119.3 kg

DRUGS (4)
  1. TOPAMAX [Suspect]
     Indication: DRUG USE FOR UNKNOWN INDICATION
     Dosage: (25 - 50 MG, TWICE DAILY)
     Route: 049
  2. WELLBUTRIN [Concomitant]
  3. LEVELEN ED [Concomitant]
  4. LEVELEN ED [Concomitant]

REACTIONS (2)
  - OPEN ANGLE GLAUCOMA [None]
  - RETINAL DISORDER [None]
